FAERS Safety Report 9459604 (Version 1)
Quarter: 2013Q3

REPORT INFORMATION
  Report Type: Spontaneous
  Country: IT (occurrence: IT)
  Receive Date: 20130815
  Receipt Date: 20130815
  Transmission Date: 20140515
  Serious: Yes (Other)
  Sender: FDA-Public Use
  Company Number: IT-VERTEX PHARMACEUTICALS INC-2013-008754

PATIENT
  Age: 39 Year
  Sex: Female

DRUGS (1)
  1. INCIVO [Suspect]
     Indication: HEPATITIS CHRONIC ACTIVE
     Dosage: 6 DF, QD
     Route: 048
     Dates: start: 20130515, end: 20130801

REACTIONS (2)
  - Pyrexia [Recovered/Resolved]
  - Lichenoid keratosis [Recovered/Resolved]
